FAERS Safety Report 8785665 (Version 3)
Quarter: 2012Q4

REPORT INFORMATION
  Report Type: 
  Country: US (occurrence: US)
  Receive Date: 20120914
  Receipt Date: 20121018
  Transmission Date: 20130627
  Serious: Yes (Hospitalization, Other)
  Sender: FDA-Public Use
  Company Number: US-PFIZER INC-2012223956

PATIENT
  Age: 49 Year
  Sex: Female
  Weight: 55.78 kg

DRUGS (10)
  1. ADRIAMYCIN [Suspect]
     Indication: BREAST CANCER STAGE III
     Dosage: UNK
     Dates: start: 199805, end: 1998
  2. ADRIAMYCIN [Suspect]
     Indication: OESTROGEN RECEPTOR ASSAY POSITIVE
  3. CISPLATIN [Suspect]
     Indication: BREAST CANCER STAGE III
     Dosage: UNK
     Dates: start: 199805, end: 1998
  4. CISPLATIN [Suspect]
     Indication: OESTROGEN RECEPTOR ASSAY POSITIVE
  5. CARBOPLATIN [Suspect]
     Indication: BREAST CANCER STAGE III
     Dosage: UNK
     Dates: start: 199805, end: 1998
  6. CARBOPLATIN [Suspect]
     Indication: OESTROGEN RECEPTOR ASSAY POSITIVE
  7. CYTOXAN [Suspect]
     Indication: BREAST CANCER STAGE III
     Dosage: UNK
     Dates: start: 199805, end: 1998
  8. CYTOXAN [Suspect]
     Indication: OESTROGEN RECEPTOR ASSAY POSITIVE
  9. ACYCLOVIR [Concomitant]
  10. NORDETTE [Concomitant]

REACTIONS (3)
  - Bone marrow disorder [Recovered/Resolved with Sequelae]
  - Staphylococcal infection [Recovered/Resolved]
  - Carotid artery thrombosis [Recovered/Resolved]
